FAERS Safety Report 21872816 (Version 3)
Quarter: 2023Q1

REPORT INFORMATION
  Report Type: Spontaneous
  Country: AT (occurrence: AT)
  Receive Date: 20230117
  Receipt Date: 20230314
  Transmission Date: 20230418
  Serious: Yes (Life-Threatening, Hospitalization, Other)
  Sender: FDA-Public Use
  Company Number: AT-OTSUKA-2022_055921

PATIENT
  Age: 20 Year
  Sex: Female

DRUGS (39)
  1. ARIPIPRAZOLE [Suspect]
     Active Substance: ARIPIPRAZOLE
     Indication: Borderline personality disorder
     Dosage: 5 MG
     Route: 065
  2. ARIPIPRAZOLE [Suspect]
     Active Substance: ARIPIPRAZOLE
     Indication: Major depression
  3. LORAZEPAM [Suspect]
     Active Substance: LORAZEPAM
     Indication: Borderline personality disorder
     Dosage: 2.5 MG
     Route: 065
  4. LORAZEPAM [Suspect]
     Active Substance: LORAZEPAM
     Indication: Anxiety
  5. LORAZEPAM [Suspect]
     Active Substance: LORAZEPAM
     Indication: Agitation
  6. LORAZEPAM [Suspect]
     Active Substance: LORAZEPAM
     Indication: Tension
  7. LORAZEPAM [Suspect]
     Active Substance: LORAZEPAM
     Indication: Major depression
  8. TOPIRAMATE [Suspect]
     Active Substance: TOPIRAMATE
     Indication: Borderline personality disorder
     Dosage: 50 MG
     Route: 065
  9. TOPIRAMATE [Suspect]
     Active Substance: TOPIRAMATE
     Indication: Major depression
  10. CLONAZEPAM [Suspect]
     Active Substance: CLONAZEPAM
     Indication: Borderline personality disorder
     Dosage: 0.5 MG
     Route: 065
  11. CLONAZEPAM [Suspect]
     Active Substance: CLONAZEPAM
     Indication: Anxiety
     Dosage: UNK
     Route: 065
  12. CLONAZEPAM [Suspect]
     Active Substance: CLONAZEPAM
     Indication: Tension
     Dosage: 1 MG
     Route: 065
  13. CLONAZEPAM [Suspect]
     Active Substance: CLONAZEPAM
     Indication: Sedative therapy
  14. CLONAZEPAM [Suspect]
     Active Substance: CLONAZEPAM
     Indication: Agitation
  15. CLONAZEPAM [Suspect]
     Active Substance: CLONAZEPAM
     Indication: Suicide attempt
  16. CLONAZEPAM [Suspect]
     Active Substance: CLONAZEPAM
     Indication: Sedation
  17. CLOMIPRAMINE HYDROCHLORIDE [Suspect]
     Active Substance: CLOMIPRAMINE HYDROCHLORIDE
     Indication: Borderline personality disorder
     Dosage: UPTO 225 MG, QD
     Route: 048
  18. CLOMIPRAMINE HYDROCHLORIDE [Suspect]
     Active Substance: CLOMIPRAMINE HYDROCHLORIDE
     Indication: Major depression
  19. LITHIUM [Suspect]
     Active Substance: LITHIUM
     Indication: Borderline personality disorder
     Dosage: 225 MG
     Route: 065
  20. LITHIUM [Suspect]
     Active Substance: LITHIUM
     Indication: Major depression
  21. DULOXETINE [Suspect]
     Active Substance: DULOXETINE
     Indication: Borderline personality disorder
     Dosage: 60-180 MG
     Route: 065
  22. DULOXETINE [Suspect]
     Active Substance: DULOXETINE
     Indication: Major depression
  23. BUPROPION [Suspect]
     Active Substance: BUPROPION
     Indication: Borderline personality disorder
     Dosage: 150 MG, QD (EXTENDED RELEASE)
     Route: 048
  24. BUPROPION [Suspect]
     Active Substance: BUPROPION
     Indication: Major depression
  25. ESCITALOPRAM [Suspect]
     Active Substance: ESCITALOPRAM OXALATE
     Indication: Borderline personality disorder
     Dosage: 30 MG, QD(RELATIVELY HIGH DOSE OF ESCITALOPRAM)
     Route: 048
  26. ESCITALOPRAM [Suspect]
     Active Substance: ESCITALOPRAM OXALATE
     Indication: Major depression
  27. ZOLPIDEM [Suspect]
     Active Substance: ZOLPIDEM TARTRATE
     Indication: Hallucinations, mixed
     Dosage: 10 MG, ONLY ONCE
     Route: 065
  28. ZOLPIDEM [Suspect]
     Active Substance: ZOLPIDEM TARTRATE
     Indication: Major depression
  29. TRAZODONE [Suspect]
     Active Substance: TRAZODONE HYDROCHLORIDE
     Indication: Borderline personality disorder
     Dosage: 150 MG, QD (RETARD PREPARATION)
     Route: 048
  30. TRAZODONE [Suspect]
     Active Substance: TRAZODONE HYDROCHLORIDE
     Indication: Major depression
  31. QUETIAPINE [Suspect]
     Active Substance: QUETIAPINE
     Indication: Borderline personality disorder
     Dosage: 25 MG
     Route: 048
  32. QUETIAPINE [Suspect]
     Active Substance: QUETIAPINE
     Indication: Major depression
  33. RISPERIDONE [Suspect]
     Active Substance: RISPERIDONE
     Indication: Borderline personality disorder
     Dosage: 1 MG
     Route: 065
  34. RISPERIDONE [Suspect]
     Active Substance: RISPERIDONE
     Indication: Major depression
  35. ESKETAMINE [Suspect]
     Active Substance: ESKETAMINE
     Indication: Borderline personality disorder
     Dosage: 5 IV INFUSIONS OVER 40-60 MIN DURING A PERIOD OF TWO WEEKS
     Route: 017
  36. ESKETAMINE [Suspect]
     Active Substance: ESKETAMINE
     Indication: Depression
     Dosage: FIVE ESKETAMINE 25 OR 50 MG OVER 40-60 MIN
     Route: 017
  37. ESKETAMINE [Suspect]
     Active Substance: ESKETAMINE
     Indication: Toxicity to various agents
     Dosage: OVER 40 TO 60 MINUTES (IN TOTAL, SHE RECEIVED 5 ESKETAMINE 25 OR 50 MG ADMINISTRATIONS
     Route: 017
  38. ESKETAMINE [Suspect]
     Active Substance: ESKETAMINE
     Indication: Suicide attempt
  39. ESKETAMINE [Suspect]
     Active Substance: ESKETAMINE
     Indication: Major depression

REACTIONS (11)
  - Therapy non-responder [Unknown]
  - Toxicity to various agents [Recovered/Resolved]
  - Vertigo [Unknown]
  - Suicidal behaviour [Recovered/Resolved]
  - Suicidal ideation [Recovering/Resolving]
  - Suicide attempt [Unknown]
  - Agitation [Unknown]
  - Tremor [Unknown]
  - Overdose [Unknown]
  - Abnormal behaviour [Recovering/Resolving]
  - Product use in unapproved indication [Unknown]
